FAERS Safety Report 8900202 (Version 3)
Quarter: 2013Q1

REPORT INFORMATION
  Report Type: Spontaneous
  Country: US (occurrence: US)
  Receive Date: 20121109
  Receipt Date: 20130109
  Transmission Date: 20140127
  Serious: Yes (Hospitalization)
  Sender: FDA-Public Use
  Company Number: US-ALEXION PHARMACEUTICALS INC.-A201202088

PATIENT
  Age: 65 None
  Sex: Female

DRUGS (7)
  1. SOLIRIS 300MG [Suspect]
     Indication: PAROXYSMAL NOCTURNAL HAEMOGLOBINURIA
     Dosage: 600 MG, QW
     Route: 042
     Dates: start: 201109
  2. SOLIRIS 300MG [Suspect]
     Dosage: 900 MG, Q2W
     Route: 042
  3. SOLIRIS 300MG [Suspect]
     Dosage: 1200 MG, Q2W
     Route: 042
  4. GLUCOPHAGE [Concomitant]
     Indication: DIABETES MELLITUS
     Dosage: UNK, QD
     Route: 048
  5. VITAMIN C [Concomitant]
     Dosage: UNK, QD
     Route: 048
  6. VITAMIN D [Concomitant]
     Dosage: UNK, QD
     Route: 048
  7. PREDNISONE [Concomitant]
     Dosage: UNK, QD
     Route: 048

REACTIONS (4)
  - Knee arthroplasty [Recovered/Resolved with Sequelae]
  - Mobility decreased [Recovering/Resolving]
  - Platelet count decreased [Not Recovered/Not Resolved]
  - Muscle spasms [Not Recovered/Not Resolved]
